FAERS Safety Report 20710331 (Version 3)
Quarter: 2022Q4

REPORT INFORMATION
  Report Type: Spontaneous
  Country: US (occurrence: US)
  Receive Date: 20220414
  Receipt Date: 20221220
  Transmission Date: 20230112
  Serious: No
  Sender: FDA-Public Use
  Company Number: US-PFIZER INC-2021895615

PATIENT
  Age: 75 Year
  Sex: Female

DRUGS (2)
  1. AROMASIN [Suspect]
     Active Substance: EXEMESTANE
     Dosage: 25 MG, DAILY
     Route: 048
  2. AROMASIN [Suspect]
     Active Substance: EXEMESTANE
     Dosage: 50 MG, DAILY (TAKE 2 TABLETS (50 MG TOTAL) BY MOUTH DAILY)
     Route: 048

REACTIONS (1)
  - Neoplasm progression [Unknown]
